FAERS Safety Report 21095823 (Version 1)
Quarter: 2022Q3

REPORT INFORMATION
  Report Type: Spontaneous
  Country: NL (occurrence: NL)
  Receive Date: 20220718
  Receipt Date: 20220718
  Transmission Date: 20221026
  Serious: Yes (Other)
  Sender: FDA-Public Use
  Company Number: None

PATIENT
  Sex: Male

DRUGS (5)
  1. LISINOPRIL [Suspect]
     Active Substance: LISINOPRIL
     Indication: Hypertension
     Dosage: 10 MG, QD (1 X PER DAG 1 STUK)
     Route: 065
     Dates: start: 20220525, end: 20220603
  2. DULAGLUTIDE [Concomitant]
     Active Substance: DULAGLUTIDE
     Indication: Product used for unknown indication
     Dosage: UNK (INJECTIEVLOEISTOF, 3 MG/ML (MILLIGRAM PER MILLILITER))
     Route: 065
  3. HYDROCHLOROTHIAZIDE [Concomitant]
     Active Substance: HYDROCHLOROTHIAZIDE
     Indication: Product used for unknown indication
     Dosage: UNK (TABLET, 12,5 MG (MILLIGRAM))
     Route: 065
  4. SIMVASTATIN [Concomitant]
     Active Substance: SIMVASTATIN
     Indication: Product used for unknown indication
     Dosage: UNK (FILMOMHULDE TABLET, 40 MG (MILLIGRAM))
     Route: 065
  5. METFORMIN HYDROCHLORIDE [Concomitant]
     Active Substance: METFORMIN HYDROCHLORIDE
     Indication: Product used for unknown indication
     Dosage: UNK (TABLET MET GEREGULEERDE AFGIFTE, 500 MG (MILLIGRAM))
     Route: 065

REACTIONS (2)
  - Colitis ulcerative [Recovering/Resolving]
  - Condition aggravated [Recovering/Resolving]
